FAERS Safety Report 9252011 (Version 2)
Quarter: 2013Q2

REPORT INFORMATION
  Report Type: Spontaneous
  Country: US (occurrence: US)
  Receive Date: 20130424
  Receipt Date: 20130502
  Transmission Date: 20140414
  Serious: Yes (Life-Threatening, Other)
  Sender: FDA-Public Use
  Company Number: US-PFIZER INC-2013127287

PATIENT
  Age: 66 Year
  Sex: Female

DRUGS (3)
  1. LYRICA [Suspect]
     Indication: FIBROMYALGIA
     Dosage: UNK
     Dates: start: 2002
  2. BENEFIBER [Suspect]
     Indication: IRRITABLE BOWEL SYNDROME
     Dosage: 4 TO 8 TSP IN 24 HRS, 1X/DAY
     Route: 048
  3. BENEFIBER [Suspect]
     Dosage: 1 DF, AS NEEDED
     Route: 048

REACTIONS (6)
  - Apparent death [Recovered/Resolved]
  - Hyperhidrosis [Recovered/Resolved]
  - Pain [Recovered/Resolved]
  - Gait disturbance [Recovered/Resolved]
  - Vertigo [Not Recovered/Not Resolved]
  - Diarrhoea [Recovered/Resolved]
